FAERS Safety Report 4441848-7 (Version None)
Quarter: 2004Q3

REPORT INFORMATION
  Report Type: 
  Country: None (occurrence: None)
  Receive Date: 20040901
  Receipt Date: 20040819
  Transmission Date: 20050211
  Serious: Yes (Disabling)
  Sender: FDA-Public Use
  Company Number: 2004058229

PATIENT
  Age: 82 Year
  Weight: 47 kg

DRUGS (2)
  1. DOXAZOSIN (DOXAZOSIN) [Suspect]
     Indication: HYPERTENSION
     Dosage: 4 MG (4 MG, 1 IN 1 D), ORAL
     Route: 048
     Dates: start: 20040702, end: 20040710
  2. VALSARTAN (VALSARTAN) [Concomitant]

REACTIONS (1)
  - PAIN IN EXTREMITY [None]
